FAERS Safety Report 24585295 (Version 1)
Quarter: 2024Q4

REPORT INFORMATION
  Report Type: Spontaneous
  Country: FR (occurrence: FR)
  Receive Date: 20241106
  Receipt Date: 20241106
  Transmission Date: 20250115
  Serious: Yes (Other)
  Sender: MYLAN
  Company Number: None

PATIENT
  Age: 34 Year
  Sex: Female

DRUGS (5)
  1. ALPRAZOLAM [Suspect]
     Active Substance: ALPRAZOLAM
     Indication: Product used for unknown indication
     Dosage: AT LEAST 2 MG/DAY
     Route: 048
     Dates: start: 2023
  2. ZOPICLONE [Suspect]
     Active Substance: ZOPICLONE
     Indication: Product used for unknown indication
     Dosage: AT LEAST 15 MG/D AND UP TO 30 MG/D
     Route: 048
     Dates: start: 2023
  3. CANNABIS SATIVA SUBSP. INDICA TOP [Suspect]
     Active Substance: CANNABIS SATIVA SUBSP. INDICA TOP
     Indication: Product used for unknown indication
     Dosage: 2 JOINTS, QD
     Route: 055
     Dates: start: 2005
  4. ALCOHOL [Suspect]
     Active Substance: ALCOHOL
     Indication: Product used for unknown indication
     Dosage: 33 CL BEER AT 8.5? PLUS 1.5L OF WINE, 1/2 BOTTLE OF VODKA
     Route: 048
     Dates: start: 2008
  5. VALIUM [Suspect]
     Active Substance: DIAZEPAM
     Indication: Product used for unknown indication
     Dosage: AT LEAST 60 MG/DAY
     Route: 048
     Dates: start: 2023

REACTIONS (2)
  - Drug use disorder [Not Recovered/Not Resolved]
  - Substance use disorder [Not Recovered/Not Resolved]
